FAERS Safety Report 7942871-8 (Version None)
Quarter: 2011Q4

REPORT INFORMATION
  Report Type: 
  Country: None (occurrence: None)
  Receive Date: 20111128
  Receipt Date: 20111118
  Transmission Date: 20120403
  Serious: Yes (Life-Threatening)
  Sender: FDA-Public Use
  Company Number: JP-MERCK-1111USA01609

PATIENT
  Age: 30 Year
  Sex: Female
  Weight: 50 kg

DRUGS (13)
  1. DOXORUBICIN HYDROCHLORIDE [Concomitant]
     Indication: CHEMOTHERAPY
     Route: 065
     Dates: start: 20110917
  2. REBAMIPIDE [Concomitant]
     Route: 065
     Dates: start: 20101101
  3. AMOBAN [Concomitant]
     Route: 048
  4. MAGLAX (MAGNESIUM OXIDE) [Concomitant]
     Route: 048
     Dates: start: 20100601
  5. PREDNISOLONE [Concomitant]
     Route: 065
     Dates: start: 20110917, end: 20110921
  6. SEDEKOPAN [Concomitant]
     Route: 065
     Dates: start: 20110922
  7. GRANISETRON HYDROCHLORIDE [Concomitant]
     Indication: CHEMOTHERAPY
     Route: 065
     Dates: start: 20110917
  8. VELCADE [Concomitant]
     Indication: CHEMOTHERAPY
     Route: 065
     Dates: start: 20110916
  9. DEXAMETHASONE SODIUM PHOSPHATE [Concomitant]
     Indication: CHEMOTHERAPY
     Route: 065
     Dates: start: 20110916
  10. PEPCID [Suspect]
     Indication: PROPHYLAXIS
     Route: 048
     Dates: start: 20110917, end: 20110922
  11. ONCOVIN [Concomitant]
     Indication: CHEMOTHERAPY
     Route: 065
     Dates: start: 20110917
  12. DAIPHEN [Concomitant]
     Indication: PROPHYLAXIS
     Route: 065
     Dates: start: 20110917
  13. CYCLOPHOSPHAMIDE [Concomitant]
     Indication: CHEMOTHERAPY
     Route: 065
     Dates: start: 20110917

REACTIONS (1)
  - LONG QT SYNDROME [None]
